FAERS Safety Report 22104197 (Version 1)
Quarter: 2023Q1

REPORT INFORMATION
  Report Type: Spontaneous
  Country: HR (occurrence: HR)
  Receive Date: 20230316
  Receipt Date: 20230316
  Transmission Date: 20230418
  Serious: Yes (Death, Other)
  Sender: FDA-Public Use
  Company Number: HR-JNJFOC-20230325570

PATIENT

DRUGS (3)
  1. IMBRUVICA [Suspect]
     Active Substance: IBRUTINIB
     Indication: Product used for unknown indication
     Route: 048
  2. RITUXIMAB [Concomitant]
     Active Substance: RITUXIMAB
     Indication: Product used for unknown indication
     Route: 065
  3. BENDAMUSTINE [Concomitant]
     Active Substance: BENDAMUSTINE
     Indication: Product used for unknown indication
     Route: 065

REACTIONS (16)
  - Death [Fatal]
  - Epistaxis [Unknown]
  - Haemorrhage intracranial [Fatal]
  - Skin haemorrhage [Unknown]
  - Pneumonia fungal [Unknown]
  - Haemorrhage [Unknown]
  - Fungal infection [Unknown]
  - Disease progression [Fatal]
  - Hepatic lesion [Unknown]
  - Atrial fibrillation [Unknown]
  - Malignant neoplasm progression [Fatal]
  - Richter^s syndrome [Unknown]
  - Colitis [Unknown]
  - Sepsis [Fatal]
  - Encephalitis viral [Fatal]
  - Infection [Unknown]
